FAERS Safety Report 7760528-3 (Version None)
Quarter: 2011Q3

REPORT INFORMATION
  Report Type: 
  Country: None (occurrence: None)
  Receive Date: 20110919
  Receipt Date: 20110907
  Transmission Date: 20111222
  Serious: Yes (Other)
  Sender: FDA-Public Use
  Company Number: US-ELI_LILLY_AND_COMPANY-US201109004339

PATIENT
  Age: 56 Year
  Sex: Male

DRUGS (4)
  1. EFFIENT [Suspect]
     Indication: STENT PLACEMENT
     Dosage: 10 MG, QD
     Route: 065
     Dates: start: 20110815, end: 20110907
  2. LISINOPRIL [Concomitant]
     Dosage: UNK, UNKNOWN
     Route: 065
  3. VISIPAQUE [Concomitant]
     Dosage: UNK, UNKNOWN
     Route: 065
  4. METOPROLOL TARTRATE [Concomitant]
     Dosage: UNK, UNKNOWN
     Route: 065

REACTIONS (3)
  - RASH [None]
  - SKIN EXFOLIATION [None]
  - ARTERIAL CATHETERISATION [None]
